FAERS Safety Report 17938846 (Version 2)
Quarter: 2020Q3

REPORT INFORMATION
  Report Type: Report from Study
  Country: US (occurrence: US)
  Receive Date: 20200625
  Receipt Date: 20200723
  Transmission Date: 20201103
  Serious: Yes (Hospitalization)
  Sender: FDA-Public Use
  Company Number: US-ROCHE-2628345

PATIENT
  Age: 59 Year
  Sex: Female

DRUGS (18)
  1. MEGESTROL [Concomitant]
     Active Substance: MEGESTROL
     Dates: start: 20200713
  2. METHENAMINE [Concomitant]
     Active Substance: METHENAMINE
     Dates: start: 20200608
  3. BEVACIZUMAB. [Suspect]
     Active Substance: BEVACIZUMAB
     Dosage: 2 CYCLES
     Route: 065
     Dates: start: 20200218, end: 20200324
  4. CISPLATIN. [Concomitant]
     Active Substance: CISPLATIN
     Indication: CERVIX CANCER METASTATIC
     Dosage: 8 CYCLES
     Dates: start: 20190827, end: 20191119
  5. CISPLATIN. [Concomitant]
     Active Substance: CISPLATIN
     Dosage: 2 CYCLES
     Dates: start: 20200218, end: 20200324
  6. OLANZAPINE. [Concomitant]
     Active Substance: OLANZAPINE
     Indication: NAUSEA
     Dates: start: 20200713
  7. PHENAZOPYRIDINE. [Concomitant]
     Active Substance: PHENAZOPYRIDINE
  8. ATEZOLIZUMAB. [Suspect]
     Active Substance: ATEZOLIZUMAB
     Indication: ADENOCARCINOMA OF THE CERVIX
     Route: 041
     Dates: start: 20200605
  9. BEVACIZUMAB. [Suspect]
     Active Substance: BEVACIZUMAB
     Indication: ADENOCARCINOMA OF THE CERVIX
     Dosage: 8 CYCLES
     Route: 065
     Dates: start: 20190827, end: 20191119
  10. PACLITAXEL. [Concomitant]
     Active Substance: PACLITAXEL
     Indication: CERVIX CANCER METASTATIC
     Dosage: 8 CYCLES
     Dates: start: 20190827, end: 20191119
  11. OXYCODON [Concomitant]
     Active Substance: OXYCODONE
     Indication: PAIN
     Dosage: 10?20 MG
  12. CISPLATIN. [Concomitant]
     Active Substance: CISPLATIN
     Dates: start: 20170711, end: 20170714
  13. GEMCITABINE. [Concomitant]
     Active Substance: GEMCITABINE
     Indication: CERVIX CANCER METASTATIC
     Dates: start: 20200218, end: 20200324
  14. LIDOCAINE. [Concomitant]
     Active Substance: LIDOCAINE
     Indication: URETHRAL PAIN
     Dates: start: 20200618
  15. ZOFRAN [Concomitant]
     Active Substance: ONDANSETRON HYDROCHLORIDE
     Indication: NAUSEA
     Dates: start: 20200713
  16. ZOFRAN [Concomitant]
     Active Substance: ONDANSETRON HYDROCHLORIDE
     Indication: VOMITING
  17. FAMOTIDINE. [Concomitant]
     Active Substance: FAMOTIDINE
     Indication: DYSPEPSIA
  18. HALOPERIDOL. [Concomitant]
     Active Substance: HALOPERIDOL

REACTIONS (2)
  - Constipation [Not Recovered/Not Resolved]
  - Urinary tract pain [Not Recovered/Not Resolved]

NARRATIVE: CASE EVENT DATE: 20200617
